FAERS Safety Report 5882726-6 (Version None)
Quarter: 2008Q3

REPORT INFORMATION
  Report Type: 
  Country: None (occurrence: None)
  Receive Date: 20080913
  Receipt Date: 20080828
  Transmission Date: 20090109
  Serious: Yes (Hospitalization)
  Sender: FDA-Public Use
  Company Number: US-ABBOTT-08P-163-0470761-00

PATIENT
  Sex: Female
  Weight: 63.56 kg

DRUGS (8)
  1. HUMIRA [Suspect]
     Indication: RHEUMATOID ARTHRITIS
     Route: 050
     Dates: start: 20080101, end: 20080807
  2. ALENDRONATE SODIUM [Concomitant]
     Indication: BONE DISORDER
     Route: 048
     Dates: start: 20080701
  3. LOSARTAN POTASSIUM [Concomitant]
     Indication: BLOOD PRESSURE
     Dosage: DAILY
     Route: 048
  4. CALCIUM [Concomitant]
     Indication: MINERAL SUPPLEMENTATION
     Route: 048
  5. IBUPROFEN [Concomitant]
     Indication: PAIN
     Route: 048
  6. LANSOPRAZOLE [Concomitant]
     Indication: GASTRIC DISORDER
     Route: 048
  7. TRIAMTERENE [Concomitant]
     Indication: BLOOD PRESSURE
     Route: 048
  8. PREDNISONE TAB [Concomitant]
     Indication: RHEUMATOID ARTHRITIS
     Dosage: DAILY
     Route: 048

REACTIONS (13)
  - ASTHENIA [None]
  - BLOOD POTASSIUM DECREASED [None]
  - CHEST PAIN [None]
  - DEHYDRATION [None]
  - DIARRHOEA [None]
  - DIZZINESS [None]
  - DYSPNOEA [None]
  - FATIGUE [None]
  - GASTROINTESTINAL INFECTION [None]
  - LUNG DISORDER [None]
  - OSTEOPOROSIS [None]
  - SCAR [None]
  - TINNITUS [None]
